FAERS Safety Report 7707047-8 (Version None)
Quarter: 2011Q3

REPORT INFORMATION
  Report Type: 
  Country: None (occurrence: None)
  Receive Date: 20110824
  Receipt Date: 20110818
  Transmission Date: 20111222
  Serious: Yes (Hospitalization)
  Sender: FDA-Public Use
  Company Number: US-ABBOTT-11P-163-0847711-00

PATIENT
  Sex: Female
  Weight: 77.18 kg

DRUGS (2)
  1. SYNTHROID [Suspect]
     Route: 048
     Dates: start: 20110501, end: 20110812
  2. SYNTHROID [Suspect]
     Indication: HYPOTHYROIDISM
     Route: 048
     Dates: start: 19880101, end: 20110501

REACTIONS (6)
  - BLOOD PRESSURE INCREASED [None]
  - THYROID DISORDER [None]
  - HYPOTHYROIDISM [None]
  - HEART RATE INCREASED [None]
  - HYPERTHYROIDISM [None]
  - MALAISE [None]
